FAERS Safety Report 19298731 (Version 2)
Quarter: 2021Q2

REPORT INFORMATION
  Report Type: Spontaneous
  Country: CO (occurrence: CO)
  Receive Date: 20210525
  Receipt Date: 20210627
  Transmission Date: 20210717
  Serious: Yes (Other)
  Sender: FDA-Public Use
  Company Number: CO-AMGEN-COLSP2021079391

PATIENT
  Age: 74 Year
  Sex: Female

DRUGS (1)
  1. ENBREL [Suspect]
     Active Substance: ETANERCEPT
     Indication: RHEUMATOID ARTHRITIS
     Dosage: 50 MG
     Route: 058
     Dates: start: 2012

REACTIONS (5)
  - Peripheral swelling [Recovering/Resolving]
  - Dysstasia [Unknown]
  - Pain in extremity [Recovering/Resolving]
  - Osteoporosis [Unknown]
  - Arthralgia [Unknown]
